FAERS Safety Report 11937534 (Version 1)
Quarter: 2016Q1

REPORT INFORMATION
  Report Type: Spontaneous
  Country: CA (occurrence: CA)
  Receive Date: 20160121
  Receipt Date: 20160121
  Transmission Date: 20160526
  Serious: Yes (Other)
  Sender: FDA-Public Use
  Company Number: CA-ROCHE-1697386

PATIENT
  Sex: Female

DRUGS (1)
  1. XOLAIR [Suspect]
     Active Substance: OMALIZUMAB
     Indication: ASTHMA
     Route: 058
     Dates: start: 20140602

REACTIONS (4)
  - Neutrophil count increased [Unknown]
  - Chest discomfort [Unknown]
  - Heart rate increased [Unknown]
  - Blood immunoglobulin E increased [Unknown]
